FAERS Safety Report 18597462 (Version 1)
Quarter: 2020Q4

REPORT INFORMATION
  Report Type: Spontaneous
  Country: PT (occurrence: PT)
  Receive Date: 20201209
  Receipt Date: 20201209
  Transmission Date: 20210114
  Serious: Yes (Other)
  Sender: FDA-Public Use
  Company Number: PT-B.I. PHARMACEUTICALS,INC./RIDGEFIELD-2020-BI-067514

PATIENT
  Age: 51 Year
  Sex: Male

DRUGS (1)
  1. PRITOR PLUS [Suspect]
     Active Substance: TELMISARTAN
     Indication: HYPERTENSION
     Route: 065

REACTIONS (4)
  - Temperature difference of extremities [Unknown]
  - Peripheral ischaemia [Unknown]
  - Pain in extremity [Unknown]
  - Intermittent claudication [Unknown]
